FAERS Safety Report 15592462 (Version 3)
Quarter: 2018Q4

REPORT INFORMATION
  Report Type: Report from Study
  Country: DE (occurrence: DE)
  Receive Date: 20181106
  Receipt Date: 20181204
  Transmission Date: 20190205
  Serious: Yes (Other)
  Sender: FDA-Public Use
  Company Number: DE-PFIZER INC-2018314788

PATIENT
  Sex: Female
  Weight: 72 kg

DRUGS (12)
  1. KISQALI [Suspect]
     Active Substance: RIBOCICLIB
     Dosage: 600 MG, 1X/DAY
     Route: 048
     Dates: start: 20180620, end: 20180907
  2. KISQALI [Suspect]
     Active Substance: RIBOCICLIB
     Dosage: 400 MG, 1X/DAY
     Route: 048
     Dates: start: 20180908
  3. EXEMESTANE. [Suspect]
     Active Substance: EXEMESTANE
     Dosage: UNK
     Dates: start: 20180609
  4. KISQALI [Suspect]
     Active Substance: RIBOCICLIB
     Indication: BREAST CANCER
     Dosage: 600 MG, 1X/DAY
     Route: 048
     Dates: start: 20180519
  5. SAROTEN [Suspect]
     Active Substance: AMITRIPTYLINE
     Dosage: 4 MG, 1X/DAY
     Dates: start: 20180828
  6. TORASEMIDE [Concomitant]
     Active Substance: TORSEMIDE
     Indication: HYPERTENSION
     Dosage: UNK
  7. SAROTEN [Suspect]
     Active Substance: AMITRIPTYLINE
     Indication: DEPRESSION
     Dosage: 4 MG, QD
     Dates: start: 20180620
  8. EXEMESTANE. [Suspect]
     Active Substance: EXEMESTANE
     Indication: BREAST CANCER METASTATIC
     Dosage: 25 MG, 1X/DAY
     Route: 048
     Dates: start: 20180505
  9. METOHEXAL [METOPROLOL TARTRATE] [Concomitant]
     Indication: HYPERTENSION
     Dosage: UNK
  10. KISQALI [Suspect]
     Active Substance: RIBOCICLIB
     Dosage: UNK
     Route: 048
     Dates: start: 20180608
  11. LETROZOLE. [Suspect]
     Active Substance: LETROZOLE
     Indication: BREAST CANCER
     Dosage: 2.5 MG, 1X/DAY
     Route: 048
     Dates: start: 20180525
  12. L-THYROXINE [LEVOTHYROXINE] [Concomitant]
     Indication: HYPOTHYROIDISM
     Dosage: UNK

REACTIONS (14)
  - Tremor [Recovered/Resolved]
  - Depression [Recovered/Resolved]
  - Restlessness [Recovered/Resolved]
  - Visual impairment [Not Recovered/Not Resolved]
  - Decreased appetite [Not Recovered/Not Resolved]
  - Weight decreased [Not Recovered/Not Resolved]
  - Fatigue [Recovering/Resolving]
  - Arthralgia [Recovered/Resolved]
  - Diarrhoea [Recovered/Resolved]
  - Abdominal pain upper [Not Recovered/Not Resolved]
  - Constipation [Recovering/Resolving]
  - Nausea [Recovered/Resolved]
  - Bone pain [Not Recovered/Not Resolved]
  - Alopecia [Not Recovered/Not Resolved]

NARRATIVE: CASE EVENT DATE: 20180505
